FAERS Safety Report 22918106 (Version 3)
Quarter: 2024Q2

REPORT INFORMATION
  Report Type: Other
  Country: US (occurrence: US)
  Receive Date: 20230907
  Receipt Date: 20240518
  Transmission Date: 20240715
  Serious: No
  Sender: FDA-Public Use
  Company Number: US-TRAVERE-2023TVT00376

PATIENT
  Sex: Male
  Weight: 87.09 kg

DRUGS (5)
  1. FILSPARI [Suspect]
     Active Substance: SPARSENTAN
     Indication: IgA nephropathy
     Route: 048
     Dates: start: 202307
  2. FARXIGA [Concomitant]
     Active Substance: DAPAGLIFLOZIN PROPANEDIOL
  3. FEBUXOSTAT [Concomitant]
     Active Substance: FEBUXOSTAT
  4. SUCRALFATE [Concomitant]
     Active Substance: SUCRALFATE
  5. FAMOTIDINE [Concomitant]
     Active Substance: FAMOTIDINE

REACTIONS (1)
  - Drug ineffective [Unknown]
